FAERS Safety Report 17817373 (Version 1)
Quarter: 2020Q2

REPORT INFORMATION
  Report Type: Spontaneous
  Country: GB (occurrence: GB)
  Receive Date: 20200522
  Receipt Date: 20200522
  Transmission Date: 20200714
  Serious: Yes (Hospitalization)
  Sender: FDA-Public Use
  Company Number: GB-TEVA-2020-GB-1238270

PATIENT
  Age: 55 Year
  Sex: Female

DRUGS (6)
  1. BECLOMETASONE [Concomitant]
     Active Substance: BECLOMETHASONE DIPROPIONATE
  2. MICONAZOLE. [Suspect]
     Active Substance: MICONAZOLE
     Indication: ORAL CANDIDIASIS
     Route: 061
     Dates: start: 20200427, end: 20200429
  3. SALBUTAMOL [Concomitant]
     Active Substance: ALBUTEROL
  4. OMEPRAZOLE. [Concomitant]
     Active Substance: OMEPRAZOLE
  5. AZELASTINE. [Concomitant]
     Active Substance: AZELASTINE HYDROCHLORIDE
  6. FLUCONAZOLE. [Suspect]
     Active Substance: FLUCONAZOLE
     Indication: ORAL CANDIDIASIS
     Route: 048
     Dates: start: 20200427, end: 20200429

REACTIONS (1)
  - Anaphylactoid reaction [Recovered/Resolved with Sequelae]

NARRATIVE: CASE EVENT DATE: 20200428
